FAERS Safety Report 11127699 (Version 1)
Quarter: 2015Q2

REPORT INFORMATION
  Report Type: Spontaneous
  Country: CH (occurrence: CH)
  Receive Date: 20150521
  Receipt Date: 20150521
  Transmission Date: 20150821
  Serious: Yes (Hospitalization)
  Sender: FDA-Public Use
  Company Number: CH-JNJFOC-20150510144

PATIENT
  Age: 70 Year
  Sex: Male

DRUGS (5)
  1. XARELTO [Suspect]
     Active Substance: RIVAROXABAN
     Indication: PRODUCT USED FOR UNKNOWN INDICATION
     Route: 048
     Dates: start: 201406
  2. AMIODARONE [Interacting]
     Active Substance: AMIODARONE
     Indication: PRODUCT USED FOR UNKNOWN INDICATION
     Route: 048
     Dates: start: 20141015, end: 20141030
  3. DILZEM [Concomitant]
     Active Substance: DILTIAZEM
     Route: 048
     Dates: start: 201406
  4. DIAMICRON [Concomitant]
     Active Substance: GLICLAZIDE
     Route: 048
  5. JANUMET [Concomitant]
     Active Substance: METFORMIN HYDROCHLORIDE\SITAGLIPTIN PHOSPHATE
     Route: 065

REACTIONS (2)
  - Drug interaction [Recovered/Resolved]
  - Pericardial haemorrhage [Recovered/Resolved]

NARRATIVE: CASE EVENT DATE: 20141015
